FAERS Safety Report 10044362 (Version 2)
Quarter: 2014Q2

REPORT INFORMATION
  Report Type: Spontaneous
  Country: GB (occurrence: GB)
  Receive Date: 20140328
  Receipt Date: 20140421
  Transmission Date: 20141212
  Serious: No
  Sender: FDA-Public Use
  Company Number: GB-PFIZER INC-2014085480

PATIENT
  Sex: Male

DRUGS (1)
  1. SUNITINIB MALATE [Suspect]
     Indication: METASTATIC RENAL CELL CARCINOMA
     Dosage: 62.5 MG, UNK

REACTIONS (4)
  - Bone lesion [Unknown]
  - Pleural effusion [Unknown]
  - Disease progression [Unknown]
  - Metastatic renal cell carcinoma [Unknown]
